FAERS Safety Report 9639189 (Version 1)
Quarter: 2013Q4

REPORT INFORMATION
  Report Type: Spontaneous
  Country: US (occurrence: None)
  Receive Date: 20131021
  Receipt Date: 20131021
  Transmission Date: 20140711
  Serious: Yes (Death)
  Sender: FDA-Public Use
  Company Number: 2013AP008606

PATIENT
  Age: 44 Year
  Sex: Female

DRUGS (7)
  1. PAROXETINE HCL TABLETS [Suspect]
     Route: 048
  2. TRAMADOL HYDROCHLORIDE TABLETS [Suspect]
     Route: 048
  3. LAMOTRIGINE TABLETS [Suspect]
     Route: 048
  4. CLONAZEPAM TABLETS, USP [Suspect]
     Route: 048
  5. ONDANSETRON [Suspect]
     Route: 048
  6. DIFLUNISAL [Suspect]
     Route: 048
  7. ETHANOL [Suspect]
     Route: 048

REACTIONS (2)
  - Completed suicide [None]
  - Cardio-respiratory arrest [None]
